FAERS Safety Report 8784440 (Version 2)
Quarter: 2015Q1

REPORT INFORMATION
  Report Type: Spontaneous
  Country: JP (occurrence: JP)
  Receive Date: 20120909
  Receipt Date: 20150325
  Transmission Date: 20150721
  Serious: Yes (Death, Other)
  Sender: FDA-Public Use
  Company Number: JP-PFIZER INC-2012218311

PATIENT
  Age: 35 Year
  Sex: Female

DRUGS (2)
  1. SUTENT [Suspect]
     Active Substance: SUNITINIB MALATE
     Dosage: 37.5 MG, UNK
  2. SUTENT [Suspect]
     Active Substance: SUNITINIB MALATE
     Indication: RENAL CELL CARCINOMA
     Dosage: 50 MG, 1X/DAY
     Route: 048
     Dates: start: 2011, end: 2011

REACTIONS (10)
  - Hypothyroidism [Unknown]
  - Anaemia [Unknown]
  - Renal disorder [Unknown]
  - Disease progression [Fatal]
  - Adrenal insufficiency [Unknown]
  - Platelet count decreased [Unknown]
  - Pleural effusion [Unknown]
  - Rash [Unknown]
  - Hypertension [Unknown]
  - Renal cell carcinoma [Fatal]

NARRATIVE: CASE EVENT DATE: 2011
